FAERS Safety Report 23517896 (Version 4)
Quarter: 2024Q3

REPORT INFORMATION
  Report Type: Spontaneous
  Country: IN (occurrence: IN)
  Receive Date: 20240213
  Receipt Date: 20240816
  Transmission Date: 20241016
  Serious: Yes (Other)
  Sender: SANDOZ
  Company Number: IN-SANDOZ-SDZ2024IN013316

PATIENT
  Age: 50 Year
  Sex: Male

DRUGS (3)
  1. MYFORTIC [Suspect]
     Active Substance: MYCOPHENOLATE SODIUM
     Indication: Renal transplant
     Dosage: 360 MG, BID (1-0-1)
     Route: 048
  2. TACROLIMUS [Suspect]
     Active Substance: TACROLIMUS
     Dosage: 1.5 MG, BID
     Route: 048
  3. TACROLIMUS [Suspect]
     Active Substance: TACROLIMUS
     Indication: Renal transplant
     Dosage: 2 MG, BID
     Route: 048

REACTIONS (13)
  - Hypothyroidism [Unknown]
  - Toxicity to various agents [Unknown]
  - Duodenitis [Unknown]
  - Oedema [Unknown]
  - Weight decreased [Unknown]
  - Gastritis [Unknown]
  - Gastroenteritis [Unknown]
  - Hypertension [Unknown]
  - Abdominal distension [Unknown]
  - Diarrhoea [Unknown]
  - Duodenitis [Unknown]
  - Decreased appetite [Unknown]
  - Off label use [Unknown]

NARRATIVE: CASE EVENT DATE: 20240620
